FAERS Safety Report 11569199 (Version 1)
Quarter: 2015Q3

REPORT INFORMATION
  Report Type: Spontaneous
  Country: US (occurrence: US)
  Receive Date: 20150929
  Receipt Date: 20150929
  Transmission Date: 20151125
  Serious: Yes (Death)
  Sender: FDA-Public Use
  Company Number: US-JNJFOC-20150916288

PATIENT
  Sex: Female

DRUGS (1)
  1. DURAGESIC [Suspect]
     Active Substance: FENTANYL
     Indication: NEOPLASM MALIGNANT
     Route: 062

REACTIONS (2)
  - Neoplasm malignant [Fatal]
  - Wrong technique in product usage process [Unknown]
